FAERS Safety Report 24889449 (Version 1)
Quarter: 2025Q1

REPORT INFORMATION
  Report Type: Spontaneous
  Country: US (occurrence: US)
  Receive Date: 20250127
  Receipt Date: 20250127
  Transmission Date: 20250408
  Serious: No
  Sender: APOTEX
  Company Number: US-APOTEX-2025AP001075

PATIENT
  Age: 75 Year
  Sex: Male

DRUGS (2)
  1. DULOXETINE [Suspect]
     Active Substance: DULOXETINE
     Indication: Depression
     Dosage: 60 MILLIGRAM, QD
     Route: 065
  2. PROPRANOLOL [Concomitant]
     Active Substance: PROPRANOLOL HYDROCHLORIDE
     Indication: Hypertension
     Route: 065

REACTIONS (5)
  - Cyanosis [Recovered/Resolved]
  - Vasoconstriction [Recovering/Resolving]
  - Cognitive disorder [Recovered/Resolved]
  - Peripheral coldness [Recovered/Resolved]
  - Blood pressure systolic increased [Recovering/Resolving]
